FAERS Safety Report 5244252-7 (Version None)
Quarter: 2007Q1

REPORT INFORMATION
  Report Type: 
  Country: None (occurrence: None)
  Receive Date: 20070222
  Receipt Date: 20070212
  Transmission Date: 20070707
  Serious: Yes (Other)
  Sender: FDA-Public Use
  Company Number: PHBS2007BE02268

PATIENT
  Sex: Female

DRUGS (3)
  1. ZOMETA [Suspect]
     Indication: BREAST CANCER METASTATIC
     Route: 065
     Dates: start: 20020801, end: 20061207
  2. XELODA [Concomitant]
     Route: 065
  3. NAVELBINE [Concomitant]
     Route: 065

REACTIONS (3)
  - OESTROGEN RECEPTOR ASSAY POSITIVE [None]
  - OSTEONECROSIS [None]
  - PAIN [None]
